FAERS Safety Report 19795430 (Version 1)
Quarter: 2021Q3

REPORT INFORMATION
  Report Type: Report from Study
  Country: US (occurrence: US)
  Receive Date: 20210907
  Receipt Date: 20210907
  Transmission Date: 20211014
  Serious: No
  Sender: FDA-Public Use
  Company Number: US-IPSEN BIOPHARMACEUTICALS, INC.-2021-21478

PATIENT
  Age: 37 Year
  Sex: Male

DRUGS (1)
  1. SOMATULINE DEPOT [Suspect]
     Active Substance: LANREOTIDE ACETATE
     Indication: CARCINOID SYNDROME
     Dosage: 120MG, SUBCUTANEOUS AT BUTTOCKS
     Route: 058
     Dates: start: 202012

REACTIONS (3)
  - Injection site pain [Recovered/Resolved]
  - Incorrect drug administration rate [Unknown]
  - Gait disturbance [Recovered/Resolved]
